FAERS Safety Report 6638086-6 (Version None)
Quarter: 2010Q1

REPORT INFORMATION
  Report Type: 
  Country: None (occurrence: None)
  Receive Date: 20100317
  Receipt Date: 20100305
  Transmission Date: 20100710
  Serious: Yes (Other)
  Sender: FDA-Public Use
  Company Number: CN-PFIZER INC-2010018614

PATIENT
  Age: 79 Year
  Sex: Male

DRUGS (2)
  1. ZYVOX [Suspect]
     Indication: LUNG INFECTION
     Dosage: 600 MG, UNK
     Route: 042
     Dates: start: 20100207, end: 20100207
  2. ITRACONAZOLE [Concomitant]
     Dosage: 200 MG, UNK
     Dates: start: 20100101

REACTIONS (2)
  - CHEST DISCOMFORT [None]
  - WHEEZING [None]
